FAERS Safety Report 25331013 (Version 2)
Quarter: 2025Q3

REPORT INFORMATION
  Report Type: Spontaneous
  Country: US (occurrence: US)
  Receive Date: 20250519
  Receipt Date: 20250710
  Transmission Date: 20251021
  Serious: Yes (Hospitalization, Disabling, Other)
  Sender: SANOFI AVENTIS
  Company Number: US-SA-2025SA141664

PATIENT
  Age: 28 Year
  Sex: Female

DRUGS (1)
  1. DUPIXENT [Suspect]
     Active Substance: DUPILUMAB
     Indication: Dermatitis atopic
     Route: 058
     Dates: start: 20250403, end: 20250403

REACTIONS (11)
  - Skin lesion [Recovering/Resolving]
  - Neck pain [Recovering/Resolving]
  - Rash maculo-papular [Recovering/Resolving]
  - Musculoskeletal stiffness [Recovering/Resolving]
  - Condition aggravated [Recovering/Resolving]
  - Pyrexia [Unknown]
  - Vision blurred [Recovering/Resolving]
  - Headache [Recovering/Resolving]
  - Pruritus [Recovering/Resolving]
  - Erythema [Recovering/Resolving]
  - Rash [Unknown]

NARRATIVE: CASE EVENT DATE: 20250101
